FAERS Safety Report 7407345-1 (Version None)
Quarter: 2011Q2

REPORT INFORMATION
  Report Type: 
  Country: None (occurrence: None)
  Receive Date: 20110411
  Receipt Date: 20110329
  Transmission Date: 20111010
  Serious: Yes (Hospitalization)
  Sender: FDA-Public Use
  Company Number: US-ELI_LILLY_AND_COMPANY-US201102006529

PATIENT
  Sex: Female

DRUGS (1)
  1. FORTEO [Suspect]
     Indication: OSTEOPOROSIS
     Dosage: 20 MCG
     Route: 065

REACTIONS (6)
  - ANKLE FRACTURE [None]
  - ROAD TRAFFIC ACCIDENT [None]
  - FIBULA FRACTURE [None]
  - INJECTION SITE PAIN [None]
  - CERVICAL VERTEBRAL FRACTURE [None]
  - TIBIA FRACTURE [None]
